FAERS Safety Report 9358785 (Version 2)
Quarter: 2015Q4

REPORT INFORMATION
  Report Type: Spontaneous
  Country: US (occurrence: US)
  Receive Date: 20130620
  Receipt Date: 20151218
  Transmission Date: 20160305
  Serious: Yes (Hospitalization, Other)
  Sender: FDA-Public Use
  Company Number: US-BAYER-2013-074616

PATIENT
  Age: 40 Year
  Sex: Female
  Weight: 79 kg

DRUGS (5)
  1. YASMIN [Suspect]
     Active Substance: DROSPIRENONE\ETHINYL ESTRADIOL
  2. OCELLA [Suspect]
     Active Substance: DROSPIRENONE\ETHINYL ESTRADIOL
  3. XANAX [Concomitant]
     Active Substance: ALPRAZOLAM
  4. LIPITOR [Concomitant]
     Active Substance: ATORVASTATIN CALCIUM
  5. TYLENOL [Concomitant]
     Active Substance: ACETAMINOPHEN
     Indication: HEADACHE

REACTIONS (3)
  - Embolism arterial [None]
  - Cerebrovascular accident [None]
  - Cerebral infarction [None]

NARRATIVE: CASE EVENT DATE: 201107
